FAERS Safety Report 11532491 (Version 1)
Quarter: 2015Q3

REPORT INFORMATION
  Report Type: Spontaneous
  Country: US (occurrence: US)
  Receive Date: 20150903
  Receipt Date: 20150903
  Transmission Date: 20151125
  Serious: No
  Sender: FDA-Public Use
  Company Number: US-ELI_LILLY_AND_COMPANY-US201202003094

PATIENT
  Sex: Female

DRUGS (4)
  1. LEVEMIR [Concomitant]
     Active Substance: INSULIN DETEMIR
     Dosage: 100 U, BID
  2. HUMALOG [Suspect]
     Active Substance: INSULIN LISPRO
     Dosage: 5 TO 20 U, AFTER MEALS
  3. HUMALOG [Suspect]
     Active Substance: INSULIN LISPRO
     Dosage: 5 TO 20 U, AFTER MEALS
  4. HUMALOG [Suspect]
     Active Substance: INSULIN LISPRO
     Indication: DIABETES MELLITUS
     Dosage: 5 TO 20 U, AFTER MEALS

REACTIONS (6)
  - Hypoglycaemia [Unknown]
  - Glaucoma [Not Recovered/Not Resolved]
  - Incorrect dose administered [Unknown]
  - Frustration [Unknown]
  - Anxiety [Unknown]
  - Visual acuity reduced [Not Recovered/Not Resolved]
